FAERS Safety Report 17658506 (Version 2)
Quarter: 2020Q2

REPORT INFORMATION
  Report Type: Report from Study
  Country: US (occurrence: US)
  Receive Date: 20200412
  Receipt Date: 20200609
  Transmission Date: 20200713
  Serious: Yes (Other)
  Sender: FDA-Public Use
  Company Number: US-SA-2020SA087611

PATIENT

DRUGS (4)
  1. ALIROCUMAB [Suspect]
     Active Substance: ALIROCUMAB
     Indication: BLOOD CHOLESTEROL INCREASED
     Dosage: 150 MG, QOW
     Dates: start: 2017, end: 201911
  2. ALIROCUMAB [Suspect]
     Active Substance: ALIROCUMAB
     Dosage: 150 MG, QOW
  3. REPATHA [Concomitant]
     Active Substance: EVOLOCUMAB
  4. PREDNISONE. [Suspect]
     Active Substance: PREDNISONE

REACTIONS (9)
  - Memory impairment [Unknown]
  - Influenza [Unknown]
  - Cardiac disorder [Unknown]
  - Drug hypersensitivity [Unknown]
  - Myocardial infarction [Unknown]
  - Dyspnoea [Unknown]
  - Emotional distress [Unknown]
  - Hypoacusis [Unknown]
  - Bronchitis [Unknown]

NARRATIVE: CASE EVENT DATE: 202001
